FAERS Safety Report 7023782-1 (Version None)
Quarter: 2010Q4

REPORT INFORMATION
  Report Type: 
  Country: None (occurrence: None)
  Receive Date: 20101001
  Receipt Date: 20100920
  Transmission Date: 20110411
  Serious: Yes (Hospitalization)
  Sender: FDA-Public Use
  Company Number: US-JNJFOC-20100904025

PATIENT
  Sex: Female
  Weight: 77.3 kg

DRUGS (13)
  1. GOLIMUMAB [Suspect]
     Route: 058
  2. GOLIMUMAB [Suspect]
     Indication: RHEUMATOID ARTHRITIS
     Route: 058
  3. PREDNISONE [Concomitant]
     Route: 048
  4. AMBIEN [Concomitant]
     Route: 048
  5. ASPIRIN [Concomitant]
     Route: 048
  6. CALCIUM [Concomitant]
     Route: 048
  7. CARAFATE [Concomitant]
     Route: 048
  8. LEVAQUIN [Concomitant]
     Route: 048
  9. MULTIPLE VITAMIN [Concomitant]
     Route: 048
  10. PRILOSEC [Concomitant]
     Route: 048
  11. ULTRAM [Concomitant]
     Route: 048
  12. E VITAMIN [Concomitant]
     Route: 048
  13. METHOTREXATE [Concomitant]
     Route: 048

REACTIONS (1)
  - CHEST PAIN [None]
